FAERS Safety Report 13020736 (Version 3)
Quarter: 2016Q4

REPORT INFORMATION
  Report Type: Spontaneous
  Country: DE (occurrence: DE)
  Receive Date: 20161212
  Receipt Date: 20161229
  Transmission Date: 20170207
  Serious: Yes (Hospitalization)
  Sender: FDA-Public Use
  Company Number: DE-BEH-2016075702

PATIENT
  Age: 80 Year
  Sex: Female
  Weight: 86 kg

DRUGS (18)
  1. PRIVIGEN [Suspect]
     Active Substance: HUMAN IMMUNOGLOBULIN G
     Indication: INCLUSION BODY MYOSITIS
     Dosage: UNK
     Route: 042
  2. PRIVIGEN [Suspect]
     Active Substance: HUMAN IMMUNOGLOBULIN G
     Dosage: UNK
     Route: 042
  3. ASS RATIOPHARM [Concomitant]
     Active Substance: ASPIRIN
     Dosage: 100 MG, ENTERAL; ONE TAB ONCE DAILY IN THE MORNING
     Route: 048
  4. PRIVIGEN [Suspect]
     Active Substance: HUMAN IMMUNOGLOBULIN G
     Dosage: 30 G, QD; 0.4 G/KG/BW; TOTAL 2 G/KG/BW
     Route: 042
     Dates: start: 20161118, end: 20161120
  5. MAGNO SANOL UNO [Concomitant]
     Dosage: 1 TAB 2 X DAILY, MORNING/AFTERNOON
     Route: 048
  6. OMEPRAZOL-RATIOPHARM NT [Concomitant]
     Dosage: 20 MG, ENTERAL; ONE TAB ONCE DAILY IN THE MORNING
     Route: 048
  7. PANTOPRAZOL [Concomitant]
     Active Substance: PANTOPRAZOLE SODIUM
     Dosage: 40 MG,  ENTERAL
     Route: 048
  8. PRIVIGEN [Suspect]
     Active Substance: HUMAN IMMUNOGLOBULIN G
     Indication: DYSPHAGIA
     Dosage: UNK
     Route: 042
  9. ZOLPIDEM-RATIOPHARM [Concomitant]
     Indication: INSOMNIA
     Dosage: 5 MG, ENTERAL; 1 TAB, MAX. ONCE EVERY 24 H, 16 H
     Route: 048
  10. PRIVIGEN [Suspect]
     Active Substance: HUMAN IMMUNOGLOBULIN G
     Indication: PARALYSIS
     Dosage: UNK
     Route: 042
  11. SPASMEX                            /00376202/ [Concomitant]
     Active Substance: TROSPIUM CHLORIDE
     Dosage: 15 MG, TID15 MG, ENTERAL; ONE TAB 3 X DAILY
     Route: 048
  12. ENAHEXAL                           /00574902/ [Concomitant]
     Active Substance: ENALAPRIL MALEATE
     Dosage: 5 MG,  ENTERAL; ONCE DAILY IN THE MORNING
     Route: 048
  13. EUTHYROX [Concomitant]
     Active Substance: LEVOTHYROXINE SODIUM
     Dosage: 100 ?G, ENTERAL; ONE TAB ONCE DAILY IN THE MORNING
     Route: 048
  14. PARACETAMOL-RATIOPHARM [Concomitant]
     Dosage: 500 MG,  ENTERAL
     Route: 048
  15. SOTAHEXAL [Concomitant]
     Active Substance: SOTALOL
     Dosage: 160 MG, ENTERAL; ONE TAB ONCE DAILY IN THE MORNING
     Route: 048
  16. MONO-EMBOLEX [Concomitant]
     Active Substance: CERTOPARIN SODIUM
     Indication: PROPHYLAXIS
     Dosage: 3000 IU, UNK
     Route: 042
  17. IBUHEXAL                           /00109201/ [Concomitant]
     Active Substance: IBUPROFEN
     Dosage: 600 MG,  ENTERAL
     Route: 048
  18. URBASON                            /00049601/ [Concomitant]
     Active Substance: METHYLPREDNISOLONE
     Dosage: 40 MG, ENTERAL
     Route: 048

REACTIONS (2)
  - Tension headache [Unknown]
  - Leukopenia [Not Recovered/Not Resolved]

NARRATIVE: CASE EVENT DATE: 201611
